FAERS Safety Report 9388395 (Version 1)
Quarter: 2013Q3

REPORT INFORMATION
  Report Type: Spontaneous
  Country: US (occurrence: None)
  Receive Date: 20130703
  Receipt Date: 20130703
  Transmission Date: 20140515
  Serious: Yes (Death)
  Sender: FDA-Public Use
  Company Number: CABO-13002890

PATIENT
  Age: 42 Year
  Sex: Male

DRUGS (1)
  1. COMETRIQ (CABOZANTINIB) CAPSULE [Suspect]
     Indication: LUNG NEOPLASM MALIGNANT
     Route: 048
     Dates: start: 20130430, end: 20130527

REACTIONS (4)
  - Hepatic failure [None]
  - Fatigue [None]
  - Decreased appetite [None]
  - Dehydration [None]
